FAERS Safety Report 5959630-8 (Version None)
Quarter: 2008Q4

REPORT INFORMATION
  Report Type: 
  Country: None (occurrence: None)
  Receive Date: 20081106
  Receipt Date: 20080102
  Transmission Date: 20090506
  Serious: Yes (Hospitalization, Disabling)
  Sender: FDA-Public Use
  Company Number: US200712004398

PATIENT
  Age: 60 Year
  Sex: Female
  Weight: 64.4 kg

DRUGS (6)
  1. PROZAC [Suspect]
     Indication: DEPRESSION
     Dates: end: 20070813
  2. NEXIUM [Concomitant]
  3. HUMALOG [Concomitant]
  4. METFORMIN (METFORMIN) TABLET [Concomitant]
  5. LOTREL (AMLODIPINE, BENAZEPRIL HYDROCHLORIDE) CAPSULE [Concomitant]
  6. BYETTA [Concomitant]

REACTIONS (10)
  - ABDOMINAL DISTENSION [None]
  - ABDOMINAL PAIN [None]
  - BLOOD PRESSURE INCREASED [None]
  - CEREBROVASCULAR ACCIDENT [None]
  - ERUCTATION [None]
  - LETHARGY [None]
  - NEPHROLITHIASIS [None]
  - PANCREATITIS [None]
  - VOMITING [None]
  - WEIGHT DECREASED [None]
